FAERS Safety Report 16406233 (Version 1)
Quarter: 2019Q2

REPORT INFORMATION
  Report Type: Spontaneous
  Country: US (occurrence: US)
  Receive Date: 20190607
  Receipt Date: 20190607
  Transmission Date: 20190711
  Serious: No
  Sender: FDA-Public Use
  Company Number: US-ALLERGAN-1849878US

PATIENT
  Age: 74 Year
  Sex: Female

DRUGS (1)
  1. VIBERZI [Suspect]
     Active Substance: ELUXADOLINE
     Indication: BOWEL MOVEMENT IRREGULARITY
     Dosage: 75 MG, BID
     Route: 048
     Dates: start: 20181015, end: 20181022

REACTIONS (5)
  - Product dose omission [Unknown]
  - Nausea [Not Recovered/Not Resolved]
  - Migraine [Unknown]
  - Malaise [Not Recovered/Not Resolved]
  - Gastrooesophageal reflux disease [Unknown]

NARRATIVE: CASE EVENT DATE: 20181015
